FAERS Safety Report 9996056 (Version 3)
Quarter: 2014Q2

REPORT INFORMATION
  Report Type: Spontaneous
  Country: US (occurrence: US)
  Receive Date: 20140311
  Receipt Date: 20140515
  Transmission Date: 20141212
  Serious: No
  Sender: FDA-Public Use
  Company Number: US-009507513-1403USA002499

PATIENT
  Age: 24 Year
  Sex: Female
  Weight: 69.84 kg

DRUGS (1)
  1. NEXPLANON [Suspect]
     Indication: CONTRACEPTION
     Dosage: 1 ROD
     Route: 059
     Dates: start: 20131217, end: 20140302

REACTIONS (7)
  - Infection [Unknown]
  - Device expulsion [Unknown]
  - Implant site swelling [Unknown]
  - Tenderness [Unknown]
  - Erythema [Unknown]
  - Device deployment issue [Unknown]
  - Device dislocation [Unknown]
